FAERS Safety Report 17213995 (Version 8)
Quarter: 2021Q4

REPORT INFORMATION
  Report Type: Spontaneous
  Country: US (occurrence: US)
  Receive Date: 20191230
  Receipt Date: 20211221
  Transmission Date: 20220303
  Serious: Yes (Other)
  Sender: FDA-Public Use
  Company Number: US-PFIZER INC-2019555668

PATIENT
  Age: 32 Year
  Sex: Female
  Weight: 69 kg

DRUGS (6)
  1. SOMAVERT [Suspect]
     Active Substance: PEGVISOMANT
     Indication: Acromegaly
     Dosage: 10 MG, DAILY
     Route: 058
     Dates: start: 20191219
  2. SOMAVERT [Suspect]
     Active Substance: PEGVISOMANT
     Indication: Blood growth hormone increased
     Dosage: 40 MG (LOADING DOSE)
     Dates: start: 202001
  3. SOMAVERT [Suspect]
     Active Substance: PEGVISOMANT
     Dosage: 10 MG, DAILY
     Dates: start: 202001
  4. SOMAVERT [Suspect]
     Active Substance: PEGVISOMANT
     Dosage: 15 MG, DAILY
     Route: 058
  5. SOMAVERT [Suspect]
     Active Substance: PEGVISOMANT
     Dosage: 10 MG, DAILY
     Route: 058
     Dates: start: 20200813
  6. SOMAVERT [Suspect]
     Active Substance: PEGVISOMANT
     Dosage: 20 MG, ALTERNATE DAY
     Route: 058
     Dates: start: 20210715

REACTIONS (18)
  - Lipoma [Recovered/Resolved]
  - Lipohypertrophy [Not Recovered/Not Resolved]
  - Arthralgia [Not Recovered/Not Resolved]
  - Headache [Not Recovered/Not Resolved]
  - Fatigue [Not Recovered/Not Resolved]
  - Neuralgia [Not Recovered/Not Resolved]
  - Upper respiratory tract infection [Unknown]
  - Gastroenteritis viral [Unknown]
  - Neoplasm skin [Recovered/Resolved]
  - Nasopharyngitis [Not Recovered/Not Resolved]
  - Hypersensitivity [Not Recovered/Not Resolved]
  - Constipation [Not Recovered/Not Resolved]
  - Pain in extremity [Unknown]
  - Skin laxity [Recovered/Resolved]
  - Therapeutic response unexpected [Unknown]
  - Off label use [Unknown]
  - Product administered at inappropriate site [Unknown]
  - Off label use [Unknown]

NARRATIVE: CASE EVENT DATE: 20191201
